FAERS Safety Report 4728215-3 (Version None)
Quarter: 2005Q3

REPORT INFORMATION
  Report Type: 
  Country: None (occurrence: None)
  Receive Date: 20050727
  Receipt Date: 20050708
  Transmission Date: 20060218
  Serious: Yes (Death, Hospitalization)
  Sender: FDA-Public Use
  Company Number: WAES 0507FRA00047

PATIENT
  Age: 5 Month

DRUGS (1)
  1. COSMEGEN [Suspect]
     Indication: MALIGNANT SOFT TISSUE NEOPLASM

REACTIONS (3)
  - DRUG TOXICITY [None]
  - HEPATIC FAILURE [None]
  - INCORRECT DOSE ADMINISTERED [None]
